FAERS Safety Report 19777789 (Version 1)
Quarter: 2021Q3

REPORT INFORMATION
  Report Type: Spontaneous
  Country: US (occurrence: US)
  Receive Date: 20210902
  Receipt Date: 20210902
  Transmission Date: 20211014
  Serious: Yes (Other)
  Sender: FDA-Public Use
  Company Number: US-ASTELLAS-2021US032506

PATIENT
  Age: 49 Year
  Sex: Male

DRUGS (3)
  1. AZACITIDINE. [Concomitant]
     Active Substance: AZACITIDINE
     Indication: ACUTE MYELOID LEUKAEMIA RECURRENT
     Dosage: UNK, CYCLIC
     Route: 065
  2. ASP2215 [Suspect]
     Active Substance: GILTERITINIB
     Indication: ACUTE MYELOID LEUKAEMIA RECURRENT
     Dosage: UNK UNK, CYCLIC
     Route: 065
  3. ASP2215 [Suspect]
     Active Substance: GILTERITINIB
     Dosage: UNK UNK, CYCLIC
     Route: 065

REACTIONS (3)
  - Product use issue [Unknown]
  - Off label use [Unknown]
  - Hepatosplenic candidiasis [Unknown]
